FAERS Safety Report 21748268 (Version 1)
Quarter: 2022Q4

REPORT INFORMATION
  Report Type: Spontaneous
  Country: US (occurrence: US)
  Receive Date: 20221219
  Receipt Date: 20221219
  Transmission Date: 20230112
  Serious: Yes (Other)
  Sender: FDA-Public Use
  Company Number: US-PFIZER INC-PV202200119067

PATIENT

DRUGS (1)
  1. NURTEC ODT [Suspect]
     Active Substance: RIMEGEPANT SULFATE
     Dosage: UNK

REACTIONS (5)
  - Cerebrovascular accident [Unknown]
  - Hypoaesthesia [Unknown]
  - Throat tightness [Unknown]
  - Tongue discomfort [Unknown]
  - Drug hypersensitivity [Unknown]
